FAERS Safety Report 11592192 (Version 1)
Quarter: 2015Q4

REPORT INFORMATION
  Report Type: Report from Study
  Country: US (occurrence: US)
  Receive Date: 20151005
  Receipt Date: 20151005
  Transmission Date: 20160304
  Serious: Yes (Other)
  Sender: FDA-Public Use
  Company Number: US-AMGEN-USASL2015101961

PATIENT
  Age: 60 Year
  Sex: Female

DRUGS (1)
  1. ENBREL [Suspect]
     Active Substance: ETANERCEPT
     Indication: RHEUMATOID ARTHRITIS
     Dosage: UNK UNK, UNK
     Route: 065
     Dates: start: 2006

REACTIONS (7)
  - Disability [Unknown]
  - Pain [Unknown]
  - Cataract operation [Unknown]
  - Pain in extremity [Unknown]
  - Mobility decreased [Unknown]
  - Arthritis [Unknown]
  - Cartilage injury [Unknown]

NARRATIVE: CASE EVENT DATE: 2012
